FAERS Safety Report 12155923 (Version 1)
Quarter: 2016Q1

REPORT INFORMATION
  Report Type: Spontaneous
  Country: US (occurrence: US)
  Receive Date: 20160307
  Receipt Date: 20160307
  Transmission Date: 20160526
  Serious: No
  Sender: FDA-Public Use
  Company Number: US-BAYER-2016-037880

PATIENT
  Age: 40 Year
  Sex: Female

DRUGS (1)
  1. MIRENA [Suspect]
     Active Substance: LEVONORGESTREL
     Indication: CONTRACEPTION
     Dosage: 20 MCG/24HR, CONT
     Route: 015
     Dates: start: 2011

REACTIONS (6)
  - Limb discomfort [None]
  - Adverse event [None]
  - Amenorrhoea [Not Recovered/Not Resolved]
  - Spinal pain [None]
  - Peripheral swelling [None]
  - Device use issue [None]

NARRATIVE: CASE EVENT DATE: 20160301
